FAERS Safety Report 11785550 (Version 1)
Quarter: 2015Q4

REPORT INFORMATION
  Report Type: Report from Study
  Country: US (occurrence: US)
  Receive Date: 20151130
  Receipt Date: 20151130
  Transmission Date: 20160305
  Serious: Yes (Other)
  Sender: FDA-Public Use
  Company Number: PHHO2015US019711

PATIENT
  Age: 28 Year
  Sex: Female
  Weight: 50.4 kg

DRUGS (1)
  1. CERTICAN [Suspect]
     Active Substance: EVEROLIMUS
     Indication: RENAL TRANSPLANT
     Route: 048

REACTIONS (1)
  - Renal artery thrombosis [Recovered/Resolved]

NARRATIVE: CASE EVENT DATE: 20151121
